FAERS Safety Report 11852709 (Version 5)
Quarter: 2018Q4

REPORT INFORMATION
  Report Type: Spontaneous
  Country: SE (occurrence: SE)
  Receive Date: 20151218
  Receipt Date: 20181220
  Transmission Date: 20190204
  Serious: Yes (Other)
  Sender: FDA-Public Use
  Company Number: SE-PFIZER INC-2015451274

PATIENT
  Age: 60 Year
  Sex: Female

DRUGS (3)
  1. OESTRING [Suspect]
     Active Substance: ESTRADIOL
     Indication: MUCOSAL DRYNESS
     Dosage: 1 DF, EVERY THREE MONTHS
     Dates: start: 20151106, end: 20151213
  2. CALCIUM [Concomitant]
     Active Substance: CALCIUM
     Dosage: UNK
     Dates: start: 2011
  3. LEVAXIN [Concomitant]
     Active Substance: LEVOTHYROXINE SODIUM
     Dosage: UNK
     Dates: start: 1991

REACTIONS (2)
  - Thrombophlebitis [Recovering/Resolving]
  - Deep vein thrombosis [Recovering/Resolving]

NARRATIVE: CASE EVENT DATE: 20151128
